FAERS Safety Report 12923456 (Version 2)
Quarter: 2016Q4

REPORT INFORMATION
  Report Type: Spontaneous
  Country: US (occurrence: US)
  Receive Date: 20161108
  Receipt Date: 20161129
  Transmission Date: 20170207
  Serious: Yes (Other)
  Sender: FDA-Public Use
  Company Number: US-LPDUSPRD-20160989

PATIENT
  Age: 85 Year
  Sex: Female
  Weight: 63.5 kg

DRUGS (4)
  1. COREG [Concomitant]
     Active Substance: CARVEDILOL
     Dosage: 12.5 MG QD
     Route: 065
  2. ASPIRIN. [Concomitant]
     Active Substance: ASPIRIN
     Dosage: 81 MG QD
     Route: 065
  3. ACETYLCYSTEINE SOLUTION, USP (7604-25) [Suspect]
     Active Substance: ACETYLCYSTEINE
     Dosage: 1 INHALATION VIA MINI NEB
     Route: 055
     Dates: start: 20161103
  4. AMLODIPINE [Concomitant]
     Active Substance: AMLODIPINE BESYLATE
     Dosage: 2.5 MG PRN
     Route: 065

REACTIONS (3)
  - Hypotension [Unknown]
  - Feeling abnormal [Recovered/Resolved]
  - Gait deviation [Recovered/Resolved]

NARRATIVE: CASE EVENT DATE: 20161103
